FAERS Safety Report 9094487 (Version 1)
Quarter: 2013Q1

REPORT INFORMATION
  Report Type: Spontaneous
  Country: JP (occurrence: JP)
  Receive Date: 20130219
  Receipt Date: 20130219
  Transmission Date: 20140127
  Serious: Yes (Other)
  Sender: FDA-Public Use
  Company Number: JP-B.I. PHARMACEUTICALS,INC./RIDGEFIELD-2013-BI-01904NB

PATIENT
  Sex: Male

DRUGS (2)
  1. MOBIC [Suspect]
     Route: 048
  2. OMEPRAL [Suspect]
     Route: 065

REACTIONS (1)
  - Aplastic anaemia [Unknown]
